FAERS Safety Report 5494647-1 (Version None)
Quarter: 2007Q4

REPORT INFORMATION
  Report Type: 
  Country: None (occurrence: None)
  Receive Date: 20071023
  Receipt Date: 20071023
  Transmission Date: 20080405
  Serious: Yes (Hospitalization)
  Sender: FDA-Public Use
  Company Number: None

PATIENT
  Age: 71 Year
  Sex: Male
  Weight: 75.2971 kg

DRUGS (1)
  1. QUININE [Suspect]

REACTIONS (2)
  - RIB FRACTURE [None]
  - THROMBOCYTOPENIA [None]
